FAERS Safety Report 18097639 (Version 1)
Quarter: 2020Q3

REPORT INFORMATION
  Report Type: Spontaneous
  Country: US (occurrence: US)
  Receive Date: 20200731
  Receipt Date: 20200731
  Transmission Date: 20201103
  Serious: Yes (Hospitalization, Other)
  Sender: FDA-Public Use
  Company Number: US-MYLANLABS-2020M1067986

PATIENT
  Age: 76 Year
  Sex: Male

DRUGS (3)
  1. LEUPROLIDE                         /00726901/ [Concomitant]
     Active Substance: LEUPROLIDE
     Indication: HORMONE-REFRACTORY PROSTATE CANCER
     Dosage: UNK
     Route: 065
  2. NORMAL SALINE [Concomitant]
     Active Substance: SODIUM CHLORIDE
     Indication: VEHICLE SOLUTION USE
     Dosage: 50 MILLILITER
     Route: 042
  3. MITOXANTRONE [Suspect]
     Active Substance: MITOXANTRONE HYDROCHLORIDE
     Indication: HORMONE-REFRACTORY PROSTATE CANCER
     Dosage: 12 MILLIGRAM/SQ. METER DILUTED IN SODIUM CHLORIDE
     Route: 042

REACTIONS (12)
  - Serratia infection [Recovered/Resolved]
  - Fat necrosis [Recovered/Resolved]
  - Skin burning sensation [Recovered/Resolved]
  - Enterobacter infection [Recovered/Resolved]
  - Necrosis [Recovered/Resolved]
  - Pain [Recovered/Resolved]
  - Administration site extravasation [Recovered/Resolved]
  - Skin induration [Recovered/Resolved]
  - Blister [Recovered/Resolved]
  - Oedema [Recovered/Resolved]
  - Skin discolouration [Recovered/Resolved]
  - Eschar [Recovered/Resolved]
